FAERS Safety Report 7413754-7 (Version None)
Quarter: 2011Q2

REPORT INFORMATION
  Report Type: 
  Country: None (occurrence: None)
  Receive Date: 20110413
  Receipt Date: 20110330
  Transmission Date: 20111010
  Serious: Yes (Other)
  Sender: FDA-Public Use
  Company Number: US-DX529-2011DX000018

PATIENT
  Age: 49 Year
  Sex: Male
  Weight: 87.09 kg

DRUGS (2)
  1. KALBITOR [Suspect]
     Indication: HEREDITARY ANGIOEDEMA
     Dates: start: 20110308, end: 20110308
  2. NEXIUM [Concomitant]
     Indication: PRODUCT USED FOR UNKNOWN INDICATION
     Route: 048
     Dates: start: 20100801

REACTIONS (6)
  - HYPOPNOEA [None]
  - ANAPHYLACTIC REACTION [None]
  - ELECTROCARDIOGRAM ABNORMAL [None]
  - CHEST DISCOMFORT [None]
  - FEAR [None]
  - DIZZINESS [None]
